FAERS Safety Report 9344102 (Version 2)
Quarter: 2013Q2

REPORT INFORMATION
  Report Type: Report from Study
  Country: CA (occurrence: CA)
  Receive Date: 20130612
  Receipt Date: 20130617
  Transmission Date: 20140414
  Serious: Yes (Other)
  Sender: FDA-Public Use
  Company Number: PHHY2013CA008771

PATIENT
  Age: 72 Year
  Sex: Female

DRUGS (5)
  1. GLIVEC [Suspect]
     Indication: CHRONIC MYELOID LEUKAEMIA
     Dosage: UNK
     Route: 048
     Dates: start: 2006, end: 201209
  2. GLIVEC [Suspect]
     Dosage: 600 MG, QD
     Route: 048
     Dates: start: 200604, end: 201210
  3. GLIVEC [Suspect]
     Dosage: 600 MG, QD
     Route: 048
     Dates: start: 200604, end: 201209
  4. DASATINIB [Suspect]
     Dosage: UNK UKN, UNK
     Dates: start: 201210
  5. TECTA [Concomitant]
     Dosage: UNK UKN, UNK

REACTIONS (16)
  - Toxicity to various agents [Unknown]
  - Atelectasis [Unknown]
  - Lung consolidation [Unknown]
  - Pleural effusion [Unknown]
  - Dyspnoea [Unknown]
  - Breath sounds abnormal [Unknown]
  - Hypogeusia [Unknown]
  - Drug ineffective [Unknown]
  - Diarrhoea [Unknown]
  - Weight decreased [Unknown]
  - Decreased appetite [Unknown]
  - Weight increased [Unknown]
  - Gastrooesophageal reflux disease [Unknown]
  - Eye swelling [Unknown]
  - Rash [Unknown]
  - Heart rate increased [Unknown]
